FAERS Safety Report 8595884-X (Version None)
Quarter: 2012Q3

REPORT INFORMATION
  Report Type: 
  Country: None (occurrence: None)
  Receive Date: 20120807
  Receipt Date: 20120807
  Transmission Date: 20120928
  Serious: Yes (Life-Threatening, Disabling, Other)
  Sender: FDA-Public Use
  Company Number: None

PATIENT
  Age: 68 Year
  Sex: Female

DRUGS (6)
  1. XIFAXAN TABLETS 550 MG [Suspect]
     Indication: FAECAL INCONTINENCE
     Dosage: 1500 DAILY ; 1000 DAILY
     Dates: start: 20111201, end: 20120401
  2. XIFAXAN TABLETS 550 MG [Suspect]
     Indication: GASTROINTESTINAL BACTERIAL INFECTION
     Dosage: 1500 DAILY ; 1000 DAILY
     Dates: start: 20111201, end: 20120401
  3. XIFAXAN TABLETS 550 MG [Suspect]
     Indication: FAECAL INCONTINENCE
     Dosage: 1500 DAILY ; 1000 DAILY
     Dates: start: 20120401
  4. XIFAXAN TABLETS 550 MG [Suspect]
     Indication: GASTROINTESTINAL BACTERIAL INFECTION
     Dosage: 1500 DAILY ; 1000 DAILY
     Dates: start: 20120401
  5. XIFAXAN TABLETS 550 MG [Suspect]
     Indication: FAECAL INCONTINENCE
     Dosage: 1500 DAILY ; 1000 DAILY
     Dates: start: 20120701
  6. XIFAXAN TABLETS 550 MG [Suspect]
     Indication: GASTROINTESTINAL BACTERIAL INFECTION
     Dosage: 1500 DAILY ; 1000 DAILY
     Dates: start: 20120701

REACTIONS (13)
  - NAUSEA [None]
  - MUSCLE ATROPHY [None]
  - MALNUTRITION [None]
  - ABDOMINAL PAIN [None]
  - MUSCLE SPASMS [None]
  - BONE EROSION [None]
  - DIZZINESS [None]
  - FATIGUE [None]
  - GINGIVAL BLEEDING [None]
  - WEIGHT FLUCTUATION [None]
  - OEDEMA PERIPHERAL [None]
  - STOMATITIS [None]
  - GASTROINTESTINAL INFLAMMATION [None]
